FAERS Safety Report 22931784 (Version 3)
Quarter: 2025Q3

REPORT INFORMATION
  Report Type: Spontaneous
  Country: EU (occurrence: EU)
  Receive Date: 20230911
  Receipt Date: 20250911
  Transmission Date: 20251021
  Serious: Yes (Death, Life-Threatening, Hospitalization, Other)
  Sender: JOHNSON AND JOHNSON
  Company Number: EU-Dipharma-2023-PT-000006

PATIENT
  Age: 18 Year
  Sex: Female

DRUGS (2)
  1. ZAVESCA [Suspect]
     Active Substance: MIGLUSTAT
     Indication: Niemann-Pick disease
     Route: 065
     Dates: start: 20200615
  2. ATROPINE [Concomitant]
     Active Substance: ATROPINE
     Indication: Salivary hypersecretion

REACTIONS (4)
  - Pneumonia aspiration [Fatal]
  - Encephalopathy [Not Recovered/Not Resolved]
  - Dystonia [Not Recovered/Not Resolved]
  - Urinary tract infection [Unknown]

NARRATIVE: CASE EVENT DATE: 20200911
